FAERS Safety Report 19705449 (Version 1)
Quarter: 2021Q3

REPORT INFORMATION
  Report Type: Report from Study
  Country: US (occurrence: US)
  Receive Date: 20210816
  Receipt Date: 20210816
  Transmission Date: 20211014
  Serious: Yes (Other)
  Sender: FDA-Public Use
  Company Number: US-MYLANLABS-2021M1051473

PATIENT
  Age: 35 Year
  Sex: Male

DRUGS (7)
  1. CYPROHEPTADINE. [Suspect]
     Active Substance: CYPROHEPTADINE
     Indication: DYSKINESIA
     Dosage: FOR THE NEXT YEAR
     Route: 065
  2. CLOZAPINE. [Suspect]
     Active Substance: CLOZAPINE
     Indication: DYSKINESIA
     Dosage: FOR THE NEXT YEAR
     Route: 065
  3. DONEPEZIL. [Suspect]
     Active Substance: DONEPEZIL
     Indication: DYSKINESIA
     Dosage: FOR THE NEXT YEAR
     Route: 065
  4. PERGOLIDE [Concomitant]
     Active Substance: PERGOLIDE
     Indication: PARKINSONISM
     Dosage: 0.25 MILLIGRAM, BID
     Route: 065
  5. AMANTADINE. [Suspect]
     Active Substance: AMANTADINE HYDROCHLORIDE
     Indication: DYSKINESIA
     Dosage: FOR THE NEXT YEAR
     Route: 065
  6. CARBIDOPA/LEVODOPA [Suspect]
     Active Substance: CARBIDOPA\LEVODOPA
     Indication: PARKINSONISM
     Dosage: 6 DOSAGE FORM, QD, 200/50 (UNIT NOT STATED) AT A DOSAGE OF 6 PER DAY
     Route: 065
  7. TRIHEXYPHENIDYL [Suspect]
     Active Substance: TRIHEXYPHENIDYL
     Indication: DYSKINESIA
     Dosage: UNK UNK, QD,4?6 MG DAILY
     Route: 065
     Dates: end: 200101

REACTIONS (3)
  - Drug ineffective for unapproved indication [Unknown]
  - Dyskinesia [Recovering/Resolving]
  - Off label use [Unknown]
